FAERS Safety Report 8472567-8 (Version None)
Quarter: 2012Q2

REPORT INFORMATION
  Report Type: 
  Country: None (occurrence: None)
  Receive Date: 20120627
  Receipt Date: 20120309
  Transmission Date: 20120825
  Serious: No
  Sender: FDA-Public Use
  Company Number: US-AMGEN-USASP2012011031

PATIENT
  Age: 65 Year
  Sex: Female
  Weight: 86.621 kg

DRUGS (1)
  1. PROCRIT [Suspect]
     Indication: RENAL FAILURE CHRONIC
     Dosage: UNK
     Route: 058

REACTIONS (2)
  - INJECTION SITE PAIN [None]
  - FATIGUE [None]
